FAERS Safety Report 8411743 (Version 5)
Quarter: 2016Q3

REPORT INFORMATION
  Report Type: Spontaneous
  Country: US (occurrence: US)
  Receive Date: 20120217
  Receipt Date: 20160801
  Transmission Date: 20161109
  Serious: Yes (Hospitalization, Disabling, Other)
  Sender: FDA-Public Use
  Company Number: US-009507513-1202USA02462

PATIENT
  Sex: Female
  Weight: 87.54 kg

DRUGS (11)
  1. FOSAMAX [Suspect]
     Active Substance: ALENDRONATE SODIUM
     Indication: OSTEOPOROSIS
     Dosage: 70 MG, QW
     Route: 048
     Dates: start: 20080306, end: 20100405
  2. FOSAMAX [Suspect]
     Active Substance: ALENDRONATE SODIUM
     Indication: OSTEOPOROSIS
     Dosage: 70 MG, QW
     Route: 048
     Dates: start: 20090601
  3. HYDROCHLOROTHIAZIDE (+) TRIAMTERENE [Concomitant]
     Active Substance: HYDROCHLOROTHIAZIDE\TRIAMTERENE
     Indication: OEDEMA
     Dosage: UNK, UNKNOWN
     Route: 065
     Dates: start: 20050603, end: 20070705
  4. MIACALCIN [Concomitant]
     Active Substance: CALCITONIN SALMON
     Indication: OSTEOPOROSIS
     Dosage: UNK, UNKNOWN
     Route: 065
     Dates: start: 20030219, end: 20030421
  5. FOSAMAX [Suspect]
     Active Substance: ALENDRONATE SODIUM
     Indication: OSTEOPOROSIS
     Dosage: 10 MG, QD
     Route: 048
     Dates: start: 20010918, end: 20030717
  6. HYDROCHLOROTHIAZIDE (+) TRIAMTERENE [Concomitant]
     Active Substance: HYDROCHLOROTHIAZIDE\TRIAMTERENE
     Indication: BLOOD PRESSURE MEASUREMENT
  7. LISINOPRIL. [Concomitant]
     Active Substance: LISINOPRIL
     Indication: HYPERTENSION
     Dosage: UNK, UNKNOWN
     Route: 065
     Dates: start: 20060821
  8. FOSAMAX [Suspect]
     Active Substance: ALENDRONATE SODIUM
     Indication: OSTEOPENIA
     Dosage: 70 MG, QW
     Route: 048
     Dates: start: 20050621, end: 20080130
  9. ASPIRIN. [Concomitant]
     Active Substance: ASPIRIN
     Indication: ARTHRITIS
     Dosage: UNK, UNKNOWN
     Route: 065
     Dates: start: 20070716
  10. CORTICOSTEROIDS (UNSPECIFIED) [Concomitant]
     Active Substance: UNSPECIFIED INGREDIENT
     Indication: LICHEN SCLEROSUS
     Dosage: UNK, UNKNOWN
     Route: 065
  11. COZAAR [Concomitant]
     Active Substance: LOSARTAN POTASSIUM
     Indication: HYPERTENSION
     Dosage: UNK, UNKNOWN
     Route: 065
     Dates: start: 20060911, end: 20081117

REACTIONS (60)
  - Hypertension [Unknown]
  - Chest pain [Unknown]
  - Arthritis [Unknown]
  - Cellulitis [Unknown]
  - Atrial fibrillation [Not Recovered/Not Resolved]
  - Cataract [Unknown]
  - Lacunar infarction [Unknown]
  - Blood calcium decreased [Unknown]
  - Back pain [Unknown]
  - Cardiac failure acute [Not Recovered/Not Resolved]
  - Fractured sacrum [Unknown]
  - Hypertonic bladder [Unknown]
  - Autoimmune thyroiditis [Unknown]
  - Arrhythmia [Unknown]
  - Blood sodium decreased [Unknown]
  - Haematocrit decreased [Unknown]
  - Cystitis [Unknown]
  - Cardiac murmur [Unknown]
  - Oedema [Unknown]
  - Hypothyroidism [Unknown]
  - Haemoglobin decreased [Unknown]
  - Groin pain [Unknown]
  - Inflammation [Unknown]
  - Face oedema [Recovered/Resolved]
  - Femoral neck fracture [Unknown]
  - Thyroid adenoma [Unknown]
  - Appendix disorder [Unknown]
  - Transient ischaemic attack [Unknown]
  - Urinary incontinence [Unknown]
  - Skin disorder [Unknown]
  - Cough [Unknown]
  - Femur fracture [Unknown]
  - Gallbladder disorder [Recovered/Resolved]
  - Pollakiuria [Unknown]
  - Contusion [Unknown]
  - Haematoma [Unknown]
  - Angioedema [Recovered/Resolved]
  - Anaemia postoperative [Unknown]
  - Blood urine present [Unknown]
  - Drug administration error [Unknown]
  - Pulmonary arterial pressure increased [Unknown]
  - Depression [Unknown]
  - Panic disorder [Unknown]
  - Pain in extremity [Unknown]
  - Pneumonia [Unknown]
  - Urinary tract infection [Unknown]
  - Hypoparathyroidism [Unknown]
  - Iron deficiency [Unknown]
  - Knee arthroplasty [Unknown]
  - Low turnover osteopathy [Not Recovered/Not Resolved]
  - Cerebrovascular accident [Recovered/Resolved]
  - Osteoarthritis [Unknown]
  - Arthropathy [Unknown]
  - Herpes zoster [Unknown]
  - Bladder prolapse [Unknown]
  - White blood cells urine [Unknown]
  - Drug administration error [Unknown]
  - Anxiety disorder [Unknown]
  - Pain [Unknown]
  - Abdominal pain lower [Unknown]

NARRATIVE: CASE EVENT DATE: 20020318
